FAERS Safety Report 24659327 (Version 1)
Quarter: 2024Q4

REPORT INFORMATION
  Report Type: Spontaneous
  Country: US (occurrence: US)
  Receive Date: 20241125
  Receipt Date: 20241125
  Transmission Date: 20250115
  Serious: Yes (Hospitalization)
  Sender: CATALYST PHARMA
  Company Number: US-CATALYST PHARMACEUTICALS, INC-US-CATA-24-01361

PATIENT
  Age: 83 Year
  Sex: Male
  Weight: 92.517 kg

DRUGS (23)
  1. FIRDAPSE [Suspect]
     Active Substance: AMIFAMPRIDINE PHOSPHATE
     Indication: Myasthenic syndrome
     Dosage: 1 TABLET FOUR TIMES A DAY
     Route: 048
     Dates: start: 20190201
  2. FIRDAPSE [Suspect]
     Active Substance: AMIFAMPRIDINE PHOSPHATE
     Dosage: 1 TABLET FIVE TIMES PER DAY
     Route: 048
     Dates: start: 20211208
  3. ADVIL [Concomitant]
     Active Substance: IBUPROFEN
     Indication: Pain
     Dosage: 400MG DAILY
     Route: 065
  4. CENTRUM VITAMIN [Concomitant]
     Indication: Product used for unknown indication
     Dosage: DAILY
     Route: 065
  5. FLUTICASONE [Concomitant]
     Active Substance: FLUTICASONE
     Indication: Product used for unknown indication
     Dosage: NASAL SPRAY AS NEEDED
     Route: 045
  6. IBUPROFEN [Concomitant]
     Active Substance: IBUPROFEN
     Indication: Product used for unknown indication
     Dosage: 200MG AS NEEDED
     Route: 065
  7. HUMAN IMMUNOGLOBULIN G [Concomitant]
     Active Substance: HUMAN IMMUNOGLOBULIN G
     Indication: Product used for unknown indication
     Dosage: ONCE A MONTH
     Route: 042
  8. KRILL OIL [Concomitant]
     Active Substance: DIETARY SUPPLEMENT\KRILL OIL
     Indication: Product used for unknown indication
     Dosage: 1000MG DAILY
     Route: 065
  9. MAGNESIUM [Concomitant]
     Active Substance: MAGNESIUM
     Indication: Product used for unknown indication
     Dosage: 500MG TABLET TWICE A DAY
     Route: 065
  10. MELATONIN [Concomitant]
     Active Substance: MELATONIN
     Indication: Product used for unknown indication
     Dosage: 3MG DAILY
     Route: 065
  11. MESTINON [Concomitant]
     Active Substance: PYRIDOSTIGMINE BROMIDE
     Indication: Product used for unknown indication
     Dosage: 60MG FOUR TIMES A DAY
     Route: 065
  12. METHOCARBAMOL [Concomitant]
     Active Substance: METHOCARBAMOL
     Indication: Product used for unknown indication
     Dosage: 500MG AS NEEDED
     Route: 065
  13. NICE PURE BAKING SODA [Concomitant]
     Indication: Gastrooesophageal reflux disease
     Dosage: AS NEEDED
     Route: 065
  14. ONDANSETRON [Concomitant]
     Active Substance: ONDANSETRON
     Indication: Product used for unknown indication
     Dosage: 4MG TABLET AS NEEDED
     Route: 065
  15. OXYCODONE [Concomitant]
     Active Substance: OXYCODONE
     Indication: Product used for unknown indication
     Dosage: 30MG AS NEEDED
     Route: 065
  16. PRAVASTATIN [Concomitant]
     Active Substance: PRAVASTATIN
     Indication: Product used for unknown indication
     Dosage: 20MG DAILY
     Route: 065
  17. SODIUM CHLORIDE [Concomitant]
     Active Substance: SODIUM CHLORIDE
     Indication: Product used for unknown indication
     Dosage: NASAL SPRAY AS NEEDED
     Route: 045
  18. SILODOSIN [Concomitant]
     Active Substance: SILODOSIN
     Indication: Product used for unknown indication
     Dosage: 4MG DAILY
     Route: 065
  19. TAMSULOSIN [Concomitant]
     Active Substance: TAMSULOSIN
     Indication: Product used for unknown indication
     Dosage: 0.4MG DAILY
     Route: 065
  20. TRAMADOL [Concomitant]
     Active Substance: TRAMADOL
     Indication: Product used for unknown indication
     Dosage: 50MG AS NEEDED
     Route: 065
  21. TUMS EX [Concomitant]
     Active Substance: CALCIUM CARBONATE
     Indication: Product used for unknown indication
     Dosage: 750 AS NEEDED
     Route: 065
  22. HERBALS\TURMERIC [Concomitant]
     Active Substance: HERBALS\TURMERIC
     Indication: Product used for unknown indication
     Dosage: 500MG 3 DAILY
     Route: 065
  23. VITAMIN D [Concomitant]
     Active Substance: VITAMIN D NOS
     Indication: Product used for unknown indication
     Dosage: 1000 UNITS DAILY
     Route: 065

REACTIONS (1)
  - Hip arthroplasty [Recovered/Resolved]

NARRATIVE: CASE EVENT DATE: 20241113
